FAERS Safety Report 4695551-9 (Version None)
Quarter: 2005Q2

REPORT INFORMATION
  Report Type: 
  Country: None (occurrence: None)
  Receive Date: 20050523
  Receipt Date: 20050330
  Transmission Date: 20051028
  Serious: Yes (Death, Life-Threatening, Hospitalization, Disabling, Other)
  Sender: FDA-Public Use
  Company Number: 2005CG00676

PATIENT
  Age: 23409 Day
  Sex: Male
  Weight: 56 kg

DRUGS (9)
  1. IRESSA [Suspect]
     Indication: NON-SMALL CELL LUNG CANCER
     Route: 048
     Dates: start: 20050228, end: 20050331
  2. RADIOTHERAPY [Suspect]
     Indication: NON-SMALL CELL LUNG CANCER
     Dosage: 2 GRAYS PER DAY 5 DAYS OVER 7
     Dates: start: 20050308, end: 20050407
  3. NEXIUM [Concomitant]
  4. INNOHEP [Concomitant]
     Indication: PHLEBOTHROMBOSIS
     Route: 058
  5. XANAX [Concomitant]
  6. IMOVANE [Concomitant]
     Indication: INSOMNIA
     Dates: end: 20050325
  7. EFFERALGAN CODEINE [Concomitant]
     Indication: PAIN
     Dates: start: 20050228, end: 20050407
  8. LEXOMIL [Concomitant]
     Indication: ANXIETY
     Dates: end: 20050301
  9. NORSET [Concomitant]
     Dates: start: 20050201, end: 20050324

REACTIONS (7)
  - ANOREXIA [None]
  - ASTHENIA [None]
  - CHILLS [None]
  - DEHYDRATION [None]
  - GENERAL PHYSICAL HEALTH DETERIORATION [None]
  - MALNUTRITION [None]
  - PNEUMONIA ASPIRATION [None]
